FAERS Safety Report 14278234 (Version 1)
Quarter: 2017Q4

REPORT INFORMATION
  Report Type: Spontaneous
  Country: FR (occurrence: FR)
  Receive Date: 20171212
  Receipt Date: 20171212
  Transmission Date: 20180321
  Serious: Yes (Other)
  Sender: FDA-Public Use
  Company Number: FR-MERCK KGAA-2037086

PATIENT
  Age: 54 Year
  Sex: Female
  Weight: 72 kg

DRUGS (5)
  1. NOVOTHYROX [Suspect]
     Active Substance: LEVOTHYROXINE SODIUM
     Indication: POST PROCEDURAL HYPOTHYROIDISM
  2. XANAX [Concomitant]
     Active Substance: ALPRAZOLAM
  3. ATACAND [Concomitant]
     Active Substance: CANDESARTAN CILEXETIL
  4. STILNOX [Concomitant]
     Active Substance: ZOLPIDEM TARTRATE
  5. LANSOPRAZOLE. [Concomitant]
     Active Substance: LANSOPRAZOLE

REACTIONS (14)
  - Blood glucose abnormal [None]
  - Aspartate aminotransferase increased [None]
  - Alanine aminotransferase increased [None]
  - Hepatic steatosis [None]
  - Faeces discoloured [None]
  - Rectal haemorrhage [Not Recovered/Not Resolved]
  - Non-alcoholic steatohepatitis [None]
  - Hypercholesterolaemia [None]
  - Gastritis [None]
  - Abdominal pain upper [None]
  - Serum ferritin increased [None]
  - C-reactive protein increased [None]
  - Diverticulum intestinal [None]
  - Hyperuricaemia [None]

NARRATIVE: CASE EVENT DATE: 2017
